FAERS Safety Report 9269761 (Version 1)
Quarter: 2013Q2

REPORT INFORMATION
  Report Type: Spontaneous
  Country: US (occurrence: US)
  Receive Date: 20130503
  Receipt Date: 20130503
  Transmission Date: 20140414
  Serious: Yes (Hospitalization)
  Sender: FDA-Public Use
  Company Number: US-GENZYME-CART-1000093

PATIENT
  Sex: Male

DRUGS (1)
  1. CARTICEL [Suspect]
     Indication: CARTILAGE INJURY
     Dosage: UNK (RIGHT KNEE, TWO VIALS)
     Route: 065
     Dates: start: 20111209

REACTIONS (3)
  - Septic shock [Unknown]
  - Arthritis infective [Unknown]
  - Bacterial infection [None]
